FAERS Safety Report 6929123-X (Version None)
Quarter: 2010Q3

REPORT INFORMATION
  Report Type: 
  Country: None (occurrence: None)
  Receive Date: 20100812
  Receipt Date: 20100728
  Transmission Date: 20110219
  Serious: Yes (Other)
  Sender: FDA-Public Use
  Company Number: 2010EU003704

PATIENT
  Age: 29 Year
  Sex: Male

DRUGS (1)
  1. TACROLIMUS [Suspect]
     Indication: IMMUNOSUPPRESSION

REACTIONS (1)
  - DIABETES INSIPIDUS [None]
